FAERS Safety Report 18306537 (Version 3)
Quarter: 2020Q4

REPORT INFORMATION
  Report Type: Report from Study
  Country: US (occurrence: US)
  Receive Date: 20200924
  Receipt Date: 20201009
  Transmission Date: 20210113
  Serious: Yes (Hospitalization)
  Sender: FDA-Public Use
  Company Number: US-BIOGEN-2020BI00919643

PATIENT
  Sex: Female

DRUGS (1)
  1. TYSABRI [Suspect]
     Active Substance: NATALIZUMAB
     Indication: MULTIPLE SCLEROSIS
     Route: 065
     Dates: start: 20080327

REACTIONS (6)
  - Concussion [Unknown]
  - Multiple sclerosis relapse [Not Recovered/Not Resolved]
  - COVID-19 [Unknown]
  - Rib fracture [Unknown]
  - Illness [Not Recovered/Not Resolved]
  - Fall [Recovered/Resolved]
